FAERS Safety Report 9013301 (Version 1)
Quarter: 2013Q1

REPORT INFORMATION
  Report Type: Spontaneous
  Country: US (occurrence: None)
  Receive Date: 20130107
  Receipt Date: 20130107
  Transmission Date: 20140127
  Serious: Yes (Disabling)
  Sender: FDA-Public Use
  Company Number: None

PATIENT
  Age: 55 Year
  Sex: Male
  Weight: 101.15 kg

DRUGS (1)
  1. ZINC [Suspect]
     Dosage: ONE TABLET EVERY 4-6 HOURS PO
     Route: 048
     Dates: start: 20120103, end: 20120105

REACTIONS (2)
  - Hypogeusia [None]
  - Hyposmia [None]
